FAERS Safety Report 5040714-6 (Version None)
Quarter: 2006Q3

REPORT INFORMATION
  Report Type: 
  Country: None (occurrence: None)
  Receive Date: 20060702
  Receipt Date: 20060623
  Transmission Date: 20061208
  Serious: Yes (Death, Life-Threatening, Hospitalization, Other)
  Sender: FDA-Public Use
  Company Number: MX-ABBOTT-06P-107-0336929-00

PATIENT
  Sex: Female
  Weight: 37.3 kg

DRUGS (4)
  1. KALETRA [Suspect]
     Indication: HIV INFECTION
     Dosage: 400/100 MG
     Route: 048
     Dates: start: 20050922, end: 20060501
  2. CEFATOXIME [Concomitant]
     Indication: DRUG USE FOR UNKNOWN INDICATION
  3. KETOROLAC TROMETHAMINE [Concomitant]
     Indication: DRUG USE FOR UNKNOWN INDICATION
  4. FOLIC ACID [Concomitant]
     Indication: PROPHYLAXIS
     Route: 048

REACTIONS (5)
  - ASCITES [None]
  - CHOLECYSTECTOMY [None]
  - HEPATIC FAILURE [None]
  - HEPATITIS C [None]
  - RENAL FAILURE ACUTE [None]
